FAERS Safety Report 4682992-9 (Version None)
Quarter: 2005Q2

REPORT INFORMATION
  Report Type: 
  Country: None (occurrence: None)
  Receive Date: 20050602
  Receipt Date: 20050317
  Transmission Date: 20051028
  Serious: Yes (Other)
  Sender: FDA-Public Use
  Company Number: USA050393453

PATIENT
  Age: 57 Year
  Sex: Female
  Weight: 73 kg

DRUGS (6)
  1. CYMBALTA [Suspect]
     Indication: ABDOMINAL PAIN LOWER
     Dosage: 60 MG DAY
     Dates: start: 20041001, end: 20050314
  2. EVISTA [Concomitant]
  3. TOPROL-XL [Concomitant]
  4. PREVACID [Concomitant]
  5. PERCOCET [Concomitant]
  6. DARVOCET-N 100 [Concomitant]

REACTIONS (14)
  - ABDOMINAL PAIN LOWER [None]
  - BALANCE DISORDER [None]
  - BLOOD PRESSURE INCREASED [None]
  - DEHYDRATION [None]
  - DISSOCIATION [None]
  - FATIGUE [None]
  - HEADACHE [None]
  - INCREASED APPETITE [None]
  - MALAISE [None]
  - NAUSEA [None]
  - PARAESTHESIA [None]
  - RETINAL DETACHMENT [None]
  - SOMNOLENCE [None]
  - WEIGHT INCREASED [None]
